FAERS Safety Report 20631025 (Version 2)
Quarter: 2022Q2

REPORT INFORMATION
  Report Type: Spontaneous
  Country: AT (occurrence: AT)
  Receive Date: 20220324
  Receipt Date: 20220408
  Transmission Date: 20220721
  Serious: Yes (Other)
  Sender: FDA-Public Use
  Company Number: AT-JNJFOC-20220341003

PATIENT
  Sex: Male

DRUGS (3)
  1. SIMPONI [Suspect]
     Active Substance: GOLIMUMAB
     Indication: Polyarthritis
     Route: 058
  2. COVID-19 VACCINE NOS [Suspect]
     Active Substance: COVID-19 VACCINE NOS
     Indication: Immunisation
  3. METHOTREXATE [Concomitant]
     Active Substance: METHOTREXATE
     Indication: Polyarthritis

REACTIONS (4)
  - Atrial fibrillation [Unknown]
  - Myocarditis [Unknown]
  - Product use in unapproved indication [Unknown]
  - Off label use [Unknown]
